FAERS Safety Report 6965790-2 (Version None)
Quarter: 2010Q3

REPORT INFORMATION
  Report Type: 
  Country: None (occurrence: None)
  Receive Date: 20100903
  Receipt Date: 20100901
  Transmission Date: 20110219
  Serious: Yes (Death, Other)
  Sender: FDA-Public Use
  Company Number: US-GENZYME-THYM-1001713

PATIENT
  Age: 45 Year
  Sex: Male

DRUGS (6)
  1. THYMOGLOBULIN [Suspect]
     Indication: PROPHYLAXIS AGAINST TRANSPLANT REJECTION
     Dosage: UNK
     Route: 042
  2. TACROLIMUS [Concomitant]
     Indication: IMMUNOSUPPRESSION
     Route: 065
  3. PREDNISONE [Concomitant]
     Indication: IMMUNOSUPPRESSION
     Route: 065
  4. MYCOPHENOLIC ACID [Concomitant]
     Indication: IMMUNOSUPPRESSION
     Route: 065
  5. MYCOPHENOLATE MOFETIL [Concomitant]
     Indication: IMMUNOSUPPRESSION
     Route: 065
  6. SIROLIMUS [Concomitant]
     Indication: IMMUNOSUPPRESSION
     Route: 065

REACTIONS (7)
  - AMINO ACID METABOLISM DISORDER [None]
  - BRAIN HERNIATION [None]
  - BRAIN OEDEMA [None]
  - CONVULSION [None]
  - HYPERAMMONAEMIA [None]
  - MENTAL STATUS CHANGES [None]
  - RESPIRATORY FAILURE [None]
